FAERS Safety Report 5516192-7 (Version None)
Quarter: 2007Q4

REPORT INFORMATION
  Report Type: 
  Country: None (occurrence: None)
  Receive Date: 20071114
  Receipt Date: 20070110
  Transmission Date: 20080405
  Serious: No
  Sender: FDA-Public Use
  Company Number: A0634097A

PATIENT
  Age: 54 Year
  Sex: Male
  Weight: 61.4 kg

DRUGS (1)
  1. COMMIT [Suspect]
     Dates: start: 20070102, end: 20070103

REACTIONS (4)
  - DYSPEPSIA [None]
  - ERUCTATION [None]
  - HICCUPS [None]
  - NAUSEA [None]
